FAERS Safety Report 6946239-2 (Version None)
Quarter: 2010Q3

REPORT INFORMATION
  Report Type: 
  Country: None (occurrence: None)
  Receive Date: 20100824
  Receipt Date: 20100809
  Transmission Date: 20110219
  Serious: Yes (Death, Other)
  Sender: FDA-Public Use
  Company Number: 2009BI016301

PATIENT
  Age: 55 Year
  Sex: Male

DRUGS (3)
  1. ZEVALIN [Suspect]
     Indication: DIFFUSE LARGE B-CELL LYMPHOMA
     Dosage: 1.2 MCI/KG; IX; IV
     Route: 042
     Dates: start: 20070801, end: 20070801
  2. ZEVALIN [Suspect]
     Indication: STEM CELL TRANSPLANT
     Dosage: 1.2 MCI/KG; IX; IV
     Route: 042
     Dates: start: 20070801, end: 20070801
  3. RITUXIMAB [Concomitant]

REACTIONS (6)
  - HAEMATOTOXICITY [None]
  - LEUKAEMIA [None]
  - LUNG INFECTION PSEUDOMONAL [None]
  - NEUTROPENIA [None]
  - PNEUMONIA BACTERIAL [None]
  - THROMBOCYTOPENIA [None]
